FAERS Safety Report 7397827-3 (Version None)
Quarter: 2011Q2

REPORT INFORMATION
  Report Type: 
  Country: None (occurrence: None)
  Receive Date: 20110401
  Receipt Date: 20110401
  Transmission Date: 20111010
  Serious: No
  Sender: FDA-Public Use
  Company Number: None

PATIENT
  Sex: Female
  Weight: 71.4 kg

DRUGS (2)
  1. RIZATRIPTAN BENZOATE [Suspect]
     Indication: MIGRAINE
     Dosage: 10 MG PRN 047
     Dates: start: 20100901, end: 20110301
  2. SUMATRIPTAN SUCCINATE [Suspect]
     Indication: MIGRAINE
     Dosage: 100 MG PRN 047
     Dates: start: 20100301, end: 20100901

REACTIONS (2)
  - THERAPEUTIC RESPONSE DECREASED [None]
  - PRODUCT SUBSTITUTION ISSUE [None]
